FAERS Safety Report 21994496 (Version 2)
Quarter: 2023Q1

REPORT INFORMATION
  Report Type: Spontaneous
  Country: JP (occurrence: JP)
  Receive Date: 20230215
  Receipt Date: 20230308
  Transmission Date: 20230417
  Serious: No
  Sender: FDA-Public Use
  Company Number: JP-GSKNCCC-Case-01667930_AE-67287

PATIENT

DRUGS (1)
  1. SOTROVIMAB [Suspect]
     Active Substance: SOTROVIMAB
     Dosage: 500 MG, USED AS PER THE DOSAGE AND ADMINISTRATION

REACTIONS (1)
  - COVID-19 [Recovered/Resolved]
